FAERS Safety Report 7583756-9 (Version None)
Quarter: 2011Q2

REPORT INFORMATION
  Report Type: 
  Country: None (occurrence: None)
  Receive Date: 20110630
  Receipt Date: 20110622
  Transmission Date: 20111010
  Serious: Yes (Other)
  Sender: FDA-Public Use
  Company Number: DE-ALEXION-A201100963

PATIENT
  Sex: Male

DRUGS (5)
  1. SOLIRIS [Suspect]
     Indication: HAEMOLYTIC URAEMIC SYNDROME
     Dosage: 900 MG, QW
     Route: 042
     Dates: start: 20110529
  2. VALPROIC ACID [Concomitant]
     Dosage: 600 MG, BID
     Route: 048
     Dates: start: 20110101
  3. ASPIRIN [Concomitant]
     Dosage: 100 MG, QD
     Route: 048
     Dates: start: 20110101
  4. MENCEVAX [Concomitant]
     Indication: IMMUNISATION
     Dosage: UNK
     Dates: start: 20110531, end: 20110531
  5. AZITHROMYCIN [Concomitant]
     Indication: ANTIBIOTIC PROPHYLAXIS
     Dosage: UNK
     Dates: start: 20110531, end: 20110614

REACTIONS (1)
  - LEUKOPENIA [None]
